FAERS Safety Report 6454746-4 (Version None)
Quarter: 2009Q4

REPORT INFORMATION
  Report Type: 
  Country: None (occurrence: None)
  Receive Date: 20091124
  Receipt Date: 20091117
  Transmission Date: 20100525
  Serious: Yes (Hospitalization)
  Sender: FDA-Public Use
  Company Number: ES-WATSON-2009-07090

PATIENT
  Age: 81 Year
  Sex: Female

DRUGS (4)
  1. FIORINAL W/CODEINE [Suspect]
     Indication: OSTEOARTHRITIS
     Dosage: 2 FULL DOSE (NOT SPECIFIED)
     Route: 048
     Dates: start: 20080101, end: 20090128
  2. FIORICET W/ CODEINE [Suspect]
     Indication: OSTEOARTHRITIS
     Dosage: 2 FULL DOSE (NOT SPECIFIED)
     Dates: start: 20080101, end: 20090128
  3. ARTILOG [Concomitant]
     Indication: DRUG USE FOR UNKNOWN INDICATION
     Dosage: 200 MG, DAILY
     Route: 048
     Dates: start: 20080101, end: 20090128
  4. DEXKETOPROFEN TROMETAMOL [Concomitant]
     Indication: DRUG USE FOR UNKNOWN INDICATION
     Dosage: UNK
     Route: 061
     Dates: start: 20080101, end: 20090128

REACTIONS (1)
  - IRON DEFICIENCY ANAEMIA [None]
